FAERS Safety Report 11249265 (Version 1)
Quarter: 2015Q3

REPORT INFORMATION
  Report Type: Spontaneous
  Country: US (occurrence: US)
  Receive Date: 20150708
  Receipt Date: 20150708
  Transmission Date: 20151125
  Serious: No
  Sender: FDA-Public Use
  Company Number: US-ELI_LILLY_AND_COMPANY-US200909004309

PATIENT
  Age: 65 Year
  Sex: Female

DRUGS (7)
  1. ALIMTA [Suspect]
     Active Substance: PEMETREXED DISODIUM
     Indication: NON-SMALL CELL LUNG CANCER
     Dosage: 500 MG/M2, UNK
  2. CORTICOSTEROID NOS [Concomitant]
     Active Substance: CORTICOSTEROID NOS
     Indication: SUPPLEMENTATION THERAPY
  3. AVASTIN [Concomitant]
     Active Substance: BEVACIZUMAB
     Indication: NON-SMALL CELL LUNG CANCER
     Dosage: 15 MG/M2, UNK
  4. NAVELBINE [Concomitant]
     Active Substance: VINORELBINE TARTRATE
     Indication: NON-SMALL CELL LUNG CANCER
  5. FOLIC ACID. [Concomitant]
     Active Substance: FOLIC ACID
     Indication: SUPPLEMENTATION THERAPY
  6. ALIMTA [Suspect]
     Active Substance: PEMETREXED DISODIUM
     Dosage: 375 MG/M2, UNK
  7. VITAMIN B12 [Concomitant]
     Active Substance: CYANOCOBALAMIN
     Indication: SUPPLEMENTATION THERAPY

REACTIONS (3)
  - Blood creatinine increased [Recovered/Resolved]
  - Creatinine renal clearance decreased [Recovered/Resolved]
  - Haemoptysis [Recovered/Resolved]
